FAERS Safety Report 20296218 (Version 1)
Quarter: 2022Q1

REPORT INFORMATION
  Report Type: Report from Study
  Country: TR (occurrence: TR)
  Receive Date: 20220105
  Receipt Date: 20220105
  Transmission Date: 20220423
  Serious: Yes (Other)
  Sender: FDA-Public Use
  Company Number: TR-SUN PHARMACEUTICAL INDUSTRIES LTD-2021RR-322633

PATIENT
  Age: 73 Year
  Sex: Female

DRUGS (5)
  1. CAPECITABINE [Suspect]
     Active Substance: CAPECITABINE
     Indication: Ovarian cancer
     Dosage: UNK
     Route: 065
  2. PACLITAXEL [Suspect]
     Active Substance: PACLITAXEL
     Indication: Ovarian cancer
     Dosage: UNK
     Route: 065
  3. DOXORUBICIN [Suspect]
     Active Substance: DOXORUBICIN
     Indication: Ovarian cancer
     Dosage: UNK, 4 CYCLES
     Route: 065
  4. CARBOPLATIN [Suspect]
     Active Substance: CARBOPLATIN
     Indication: Ovarian cancer
     Dosage: UNK
     Route: 065
  5. CYCLOPHOSPHAMIDE [Suspect]
     Active Substance: CYCLOPHOSPHAMIDE
     Indication: Ovarian cancer
     Dosage: UNK, 4 CYCLES
     Route: 065

REACTIONS (1)
  - Disease progression [Unknown]
